FAERS Safety Report 9185508 (Version 3)
Quarter: 2013Q2

REPORT INFORMATION
  Report Type: Report from Study
  Country: CA (occurrence: CA)
  Receive Date: 20130325
  Receipt Date: 20130415
  Transmission Date: 20140414
  Serious: Yes (Hospitalization)
  Sender: FDA-Public Use
  Company Number: CA-JNJFOC-20130307602

PATIENT
  Age: 59 Year
  Sex: Male
  Weight: 113.4 kg

DRUGS (1)
  1. REMICADE [Suspect]
     Indication: COLITIS ULCERATIVE
     Route: 042
     Dates: start: 201302

REACTIONS (3)
  - Colitis ulcerative [Recovering/Resolving]
  - Blood pressure decreased [Recovering/Resolving]
  - Dehydration [Recovering/Resolving]
